FAERS Safety Report 17446926 (Version 1)
Quarter: 2020Q1

REPORT INFORMATION
  Report Type: Spontaneous
  Country: HR (occurrence: HR)
  Receive Date: 20200221
  Receipt Date: 20200221
  Transmission Date: 20200409
  Serious: Yes (Other)
  Sender: FDA-Public Use
  Company Number: HR-US-PROVELL PHARMACEUTICALS LLC-E2B_90074990

PATIENT
  Age: 49 Year
  Sex: Female
  Weight: 73 kg

DRUGS (1)
  1. EUTHYROX [Suspect]
     Active Substance: LEVOTHYROXINE SODIUM
     Indication: HYPOTHYROIDISM
     Route: 048
     Dates: start: 201911

REACTIONS (7)
  - Fatigue [Unknown]
  - Therapeutic response changed [Unknown]
  - Hypothyroidism [Unknown]
  - Weight increased [Unknown]
  - Constipation [Unknown]
  - Feeling cold [Unknown]
  - Somnolence [Unknown]

NARRATIVE: CASE EVENT DATE: 20191101
